FAERS Safety Report 22191066 (Version 1)
Quarter: 2023Q2

REPORT INFORMATION
  Report Type: Spontaneous
  Country: CA (occurrence: CA)
  Receive Date: 20230410
  Receipt Date: 20230410
  Transmission Date: 20230722
  Serious: Yes (Other)
  Sender: FDA-Public Use
  Company Number: CA-STERISCIENCE B.V.-2023-ST-001092

PATIENT
  Age: 17 Month
  Sex: Female

DRUGS (4)
  1. GANCICLOVIR SODIUM [Suspect]
     Active Substance: GANCICLOVIR SODIUM
     Indication: Cytomegalovirus infection
     Dosage: UNK
  2. GANCICLOVIR SODIUM [Suspect]
     Active Substance: GANCICLOVIR SODIUM
     Dosage: UNK
     Route: 042
  3. Immunoglobulin [Concomitant]
     Indication: Cytomegalovirus infection
     Dosage: UNK
     Route: 042
  4. METHYLPREDNISOLONE [Concomitant]
     Active Substance: METHYLPREDNISOLONE
     Indication: Retinitis
     Dosage: RECEIVED FIVE DAY COURSE
     Route: 065

REACTIONS (2)
  - Myelosuppression [Unknown]
  - Off label use [Unknown]
